FAERS Safety Report 9737210 (Version 1)
Quarter: 2013Q4

REPORT INFORMATION
  Report Type: Spontaneous
  Country: US (occurrence: US)
  Receive Date: 20131206
  Receipt Date: 20131206
  Transmission Date: 20140711
  Serious: Yes (Disabling, Other)
  Sender: FDA-Public Use
  Company Number: US-PURDUE-USA-2013-0109158

PATIENT
  Sex: Male

DRUGS (3)
  1. OXYCONTIN (NDA 22-272) [Suspect]
     Indication: DRUG ABUSE
     Dosage: 80 MG, UNK
     Route: 048
  2. FENTANYL [Suspect]
     Indication: DRUG ABUSE
     Route: 042
  3. ALCOHOL [Suspect]
     Indication: SUBSTANCE ABUSE
     Route: 048

REACTIONS (2)
  - Substance abuse [Unknown]
  - Crime [Unknown]
